FAERS Safety Report 17457239 (Version 3)
Quarter: 2021Q1

REPORT INFORMATION
  Report Type: Report from Study
  Country: None (occurrence: US)
  Receive Date: 20200225
  Receipt Date: 20210104
  Transmission Date: 20210419
  Serious: Yes (Hospitalization)
  Sender: FDA-Public Use
  Company Number: US-ABBVIE-19K-163-3216047-00

PATIENT
  Sex: Male

DRUGS (3)
  1. VIDAZA [Concomitant]
     Active Substance: AZACITIDINE
     Indication: PRODUCT USED FOR UNKNOWN INDICATION
  2. VENCLEXTA [Suspect]
     Active Substance: VENETOCLAX
     Indication: PYREXIA
  3. VENCLEXTA [Suspect]
     Active Substance: VENETOCLAX
     Indication: MYELODYSPLASTIC SYNDROME
     Dosage: TAKE 2 TABLETS BY MOUTH DAILY FOR 2 WEEKS AND START THE WEEK AFTER VIDAZA.
     Route: 048

REACTIONS (2)
  - Off label use [Unknown]
  - Ulcer haemorrhage [Recovering/Resolving]
